FAERS Safety Report 17308886 (Version 1)
Quarter: 2020Q1

REPORT INFORMATION
  Report Type: Spontaneous
  Country: US (occurrence: US)
  Receive Date: 20200123
  Receipt Date: 20200123
  Transmission Date: 20200409
  Serious: Yes (Disabling)
  Sender: FDA-Public Use
  Company Number: None

PATIENT
  Age: 63 Year
  Sex: Female
  Weight: 63 kg

DRUGS (5)
  1. CENTRUM MULTI VITAMIN [Concomitant]
  2. FLUOROURICIL TOPICAL CREAM USP, 5%. NDC 51672-4118-6 [Suspect]
     Active Substance: FLUOROURACIL
     Indication: SKIN CANCER
     Dosage: ?          QUANTITY:2 40;?
     Route: 061
     Dates: start: 20200102, end: 20200115
  3. SUMATRIPTAN. [Concomitant]
     Active Substance: SUMATRIPTAN
  4. IMITREX [Concomitant]
     Active Substance: SUMATRIPTAN SUCCINATE
  5. MELATONIN [Concomitant]
     Active Substance: MELATONIN

REACTIONS (3)
  - Migraine [None]
  - Paranasal sinus discomfort [None]
  - Application site irritation [None]

NARRATIVE: CASE EVENT DATE: 20200116
